FAERS Safety Report 10749019 (Version 1)
Quarter: 2015Q1

REPORT INFORMATION
  Report Type: Spontaneous
  Country: US (occurrence: None)
  Receive Date: 20150128
  Receipt Date: 20150128
  Transmission Date: 20150721
  Serious: No
  Sender: FDA-Public Use
  Company Number: None

PATIENT
  Age: 47 Year
  Sex: Female
  Weight: 104.33 kg

DRUGS (1)
  1. XARELTO [Suspect]
     Active Substance: RIVAROXABAN
     Indication: THROMBOSIS
     Dosage: 2 PILLS TWICE DAILY
     Route: 048
     Dates: start: 20150126, end: 20150127

REACTIONS (2)
  - Palpitations [None]
  - Extrasystoles [None]

NARRATIVE: CASE EVENT DATE: 20150126
